FAERS Safety Report 5292377-2 (Version None)
Quarter: 2007Q2

REPORT INFORMATION
  Report Type: 
  Country: None (occurrence: None)
  Receive Date: 20070410
  Receipt Date: 20070329
  Transmission Date: 20071010
  Serious: Yes (Hospitalization)
  Sender: FDA-Public Use
  Company Number: US-ELI_LILLY_AND_COMPANY-US200703004277

PATIENT
  Age: 50 Year
  Sex: Female

DRUGS (3)
  1. FORTEO [Suspect]
     Indication: BLOOD CALCIUM DECREASED
     Dosage: UNK, UNK
     Dates: start: 20051001
  2. CALCIUM CARBONATE [Concomitant]
     Dosage: 4200 MG, DAILY (1/D)
  3. ERGOCALCIFEROL [Concomitant]
     Dosage: 400 IU, UNK

REACTIONS (6)
  - BLOOD CALCIUM DECREASED [None]
  - DEHYDRATION [None]
  - DIARRHOEA [None]
  - GASTROENTERITIS VIRAL [None]
  - INJECTION SITE IRRITATION [None]
  - MUSCLE SPASMS [None]
